FAERS Safety Report 13486776 (Version 2)
Quarter: 2017Q2

REPORT INFORMATION
  Report Type: Spontaneous
  Country: US (occurrence: US)
  Receive Date: 20170426
  Receipt Date: 20170607
  Transmission Date: 20170830
  Serious: Yes (Hospitalization)
  Sender: FDA-Public Use
  Company Number: US-MEDA-2017040047

PATIENT
  Age: 75 Year
  Sex: Male
  Weight: 46 kg

DRUGS (3)
  1. AZELASTINE HYDROCHLORIDE. [Suspect]
     Active Substance: AZELASTINE HYDROCHLORIDE
     Indication: SEASONAL ALLERGY
     Dates: start: 201701, end: 201704
  2. LORATADINE. [Concomitant]
     Active Substance: LORATADINE
  3. AZELASTINE HYDROCHLORIDE. [Suspect]
     Active Substance: AZELASTINE HYDROCHLORIDE
     Indication: SEASONAL ALLERGY
     Dates: start: 201704

REACTIONS (5)
  - Decreased appetite [Recovering/Resolving]
  - Pneumonia [Recovered/Resolved]
  - Weight decreased [Unknown]
  - Bronchitis [Recovered/Resolved]
  - Viral infection [Recovered/Resolved]

NARRATIVE: CASE EVENT DATE: 2017
